FAERS Safety Report 10567723 (Version 1)
Quarter: 2014Q4

REPORT INFORMATION
  Report Type: Spontaneous
  Country: IL (occurrence: None)
  Receive Date: 20141015
  Receipt Date: 20141015
  Transmission Date: 20150529
  Serious: Yes (Life-Threatening, Hospitalization)
  Sender: FDA-Public Use
  Company Number: A14-056

PATIENT
  Age: 33 Year
  Sex: Male

DRUGS (2)
  1. PROPHECIA [Concomitant]
  2. CAT PELT, STANDARDIZED [Suspect]
     Active Substance: FELIS CATUS SKIN
     Indication: ALLERGY TO ANIMAL
     Dosage: 2000 BAU MONTHLY, ID
     Dates: start: 20120920

REACTIONS (9)
  - Swelling face [None]
  - Eyelid oedema [None]
  - Lip swelling [None]
  - Blood pressure decreased [None]
  - Heart rate increased [None]
  - Rash [None]
  - Erythema [None]
  - Erythema of eyelid [None]
  - Cheilitis [None]

NARRATIVE: CASE EVENT DATE: 20140911
